FAERS Safety Report 10244679 (Version 1)
Quarter: 2014Q2

REPORT INFORMATION
  Report Type: Spontaneous
  Country: CN (occurrence: CN)
  Receive Date: 20140618
  Receipt Date: 20140618
  Transmission Date: 20141212
  Serious: Yes (Life-Threatening, Hospitalization, Other)
  Sender: FDA-Public Use
  Company Number: CN-GLAXOSMITHKLINE-B1004471A

PATIENT
  Age: 29 Year
  Sex: Male
  Weight: 62 kg

DRUGS (1)
  1. TAGAMET [Suspect]
     Indication: GASTROENTERITIS
     Dosage: .4G PER DAY
     Route: 042
     Dates: start: 20130127, end: 20130128

REACTIONS (1)
  - Hypoaesthesia [Recovered/Resolved]
